FAERS Safety Report 22325522 (Version 2)
Quarter: 2023Q2

REPORT INFORMATION
  Report Type: Report from Study
  Country: CO (occurrence: CO)
  Receive Date: 20230516
  Receipt Date: 20230629
  Transmission Date: 20230722
  Serious: Yes (Hospitalization, Disabling, Other)
  Sender: FDA-Public Use
  Company Number: CO-ALLERGAN-2305415US

PATIENT
  Sex: Female
  Weight: 70.012 kg

DRUGS (6)
  1. BOTOX [Suspect]
     Active Substance: ONABOTULINUMTOXINA
     Indication: Migraine
     Dosage: TIME INTERVAL: AS NECESSARY
     Route: 030
     Dates: start: 20221230, end: 20221230
  2. BOTOX [Suspect]
     Active Substance: ONABOTULINUMTOXINA
     Indication: Migraine
     Dosage: TIME INTERVAL: AS NECESSARY
     Route: 030
     Dates: start: 20210106, end: 20210106
  3. PREGABALIN [Concomitant]
     Active Substance: PREGABALIN
     Indication: Fibromyalgia
     Route: 048
     Dates: start: 2016
  4. DOLEX FORTE [Concomitant]
     Active Substance: ACETAMINOPHEN\ASPIRIN\CAFFEINE
     Indication: Pain
     Route: 048
  5. LEVOTHYROXINE [Concomitant]
     Active Substance: LEVOTHYROXINE
     Indication: Thyroid disorder
     Route: 048
  6. ACETAMINOPHEN [Concomitant]
     Active Substance: ACETAMINOPHEN
     Indication: Fibromyalgia
     Route: 048

REACTIONS (27)
  - Neoplasm [Unknown]
  - Loss of personal independence in daily activities [Unknown]
  - Spinal fracture [Unknown]
  - Spinal pain [Not Recovered/Not Resolved]
  - Confusional state [Unknown]
  - Disorientation [Unknown]
  - Fibromyalgia [Recovered/Resolved]
  - Craniofacial deformity [Recovering/Resolving]
  - Joint range of motion decreased [Unknown]
  - Fibromyalgia [Not Recovered/Not Resolved]
  - Swelling face [Unknown]
  - Back pain [Unknown]
  - Fall [Not Recovered/Not Resolved]
  - Illness [Unknown]
  - Joint injury [Not Recovered/Not Resolved]
  - Bone fissure [Not Recovered/Not Resolved]
  - Arthropathy [Not Recovered/Not Resolved]
  - Dysstasia [Not Recovered/Not Resolved]
  - Mobility decreased [Not Recovered/Not Resolved]
  - Myopathy [Unknown]
  - Arthralgia [Not Recovered/Not Resolved]
  - Pain in extremity [Not Recovered/Not Resolved]
  - Musculoskeletal stiffness [Not Recovered/Not Resolved]
  - Disturbance in attention [Unknown]
  - Inflammation [Not Recovered/Not Resolved]
  - Pain [Not Recovered/Not Resolved]
  - Gait disturbance [Not Recovered/Not Resolved]

NARRATIVE: CASE EVENT DATE: 20210101
